FAERS Safety Report 10200115 (Version 1)
Quarter: 2014Q2

REPORT INFORMATION
  Report Type: Spontaneous
  Country: US (occurrence: US)
  Receive Date: 20140527
  Receipt Date: 20140527
  Transmission Date: 20141212
  Serious: No
  Sender: FDA-Public Use
  Company Number: US-NOVEN-14US009291

PATIENT
  Sex: Female

DRUGS (1)
  1. DAYTRANA [Suspect]
     Indication: ACCIDENTAL EXPOSURE TO PRODUCT
     Dosage: 30 MG, UNKNOWN
     Route: 062

REACTIONS (3)
  - Feeling jittery [Recovered/Resolved]
  - Disturbance in attention [Recovered/Resolved]
  - Accidental exposure to product [Recovered/Resolved]
